FAERS Safety Report 8309752-1 (Version None)
Quarter: 2012Q2

REPORT INFORMATION
  Report Type: 
  Country: None (occurrence: None)
  Receive Date: 20120425
  Receipt Date: 20120411
  Transmission Date: 20120825
  Serious: Yes (Other)
  Sender: FDA-Public Use
  Company Number: PHHO2012CH000813

PATIENT
  Sex: Female
  Weight: 69 kg

DRUGS (1)
  1. ILARIS [Suspect]
     Indication: CRYOPYRIN ASSOCIATED PERIODIC SYNDROME
     Dosage: 150 MG, UNK
     Dates: start: 20090602

REACTIONS (2)
  - WEIGHT INCREASED [None]
  - HYPERHIDROSIS [None]
